FAERS Safety Report 5243980-7 (Version None)
Quarter: 2007Q1

REPORT INFORMATION
  Report Type: 
  Country: None (occurrence: None)
  Receive Date: 20070220
  Receipt Date: 20070220
  Transmission Date: 20070707
  Serious: Yes (Other)
  Sender: FDA-Public Use
  Company Number: None

PATIENT
  Age: 49 Year
  Sex: Male
  Weight: 80 kg

DRUGS (1)
  1. ISOVUE-128 [Suspect]
     Indication: COMPUTERISED TOMOGRAM
     Dosage: 100 ML ONCE IV DRIP
     Route: 041
     Dates: start: 20070207, end: 20070207

REACTIONS (2)
  - ANAPHYLACTIC REACTION [None]
  - CONVULSION [None]
